FAERS Safety Report 6655832-6 (Version None)
Quarter: 2010Q1

REPORT INFORMATION
  Report Type: 
  Country: None (occurrence: None)
  Receive Date: 20100326
  Receipt Date: 20100326
  Transmission Date: 20100710
  Serious: No
  Sender: FDA-Public Use
  Company Number: None

PATIENT
  Age: 74 Year
  Sex: Female
  Weight: 69.4003 kg

DRUGS (1)
  1. ADALAT [Suspect]
     Indication: HYPERTENSION
     Dosage: 1 DAILY
     Dates: start: 20100124, end: 20100127

REACTIONS (6)
  - CONSTIPATION [None]
  - ERYTHEMA [None]
  - FLUSHING [None]
  - GAIT DISTURBANCE [None]
  - OEDEMA PERIPHERAL [None]
  - PAIN IN EXTREMITY [None]
